FAERS Safety Report 14831244 (Version 3)
Quarter: 2018Q3

REPORT INFORMATION
  Report Type: Spontaneous
  Country: IT (occurrence: IT)
  Receive Date: 20180501
  Receipt Date: 20180906
  Transmission Date: 20181010
  Serious: Yes (Death)
  Sender: FDA-Public Use
  Company Number: IT-ASTRAZENECA-2018SE55196

PATIENT
  Age: 18480 Day
  Sex: Female

DRUGS (1)
  1. IRESSA [Suspect]
     Active Substance: GEFITINIB
     Indication: LUNG ADENOCARCINOMA
     Route: 048
     Dates: start: 20180328, end: 20180411

REACTIONS (3)
  - Acute respiratory failure [Fatal]
  - Interstitial lung disease [Fatal]
  - Cardiac flutter [Fatal]

NARRATIVE: CASE EVENT DATE: 20180410
